FAERS Safety Report 9571299 (Version 1)
Quarter: 2013Q4

REPORT INFORMATION
  Report Type: Spontaneous
  Country: JP (occurrence: JP)
  Receive Date: 20131001
  Receipt Date: 20131001
  Transmission Date: 20140711
  Serious: Yes (Hospitalization)
  Sender: FDA-Public Use
  Company Number: JP-BAYER-2013-117076

PATIENT
  Age: 71 Year
  Sex: Male

DRUGS (2)
  1. STIVARGA [Suspect]
     Indication: COLORECTAL CANCER
     Dosage: 160 MG, QD
     Route: 048
     Dates: start: 20130716, end: 201308
  2. STIVARGA [Suspect]
     Indication: COLORECTAL CANCER
     Dosage: UNK
     Route: 048
     Dates: start: 201308, end: 201309

REACTIONS (1)
  - Visual acuity reduced [Not Recovered/Not Resolved]
